FAERS Safety Report 25176933 (Version 5)
Quarter: 2025Q2

REPORT INFORMATION
  Report Type: Spontaneous
  Country: JP (occurrence: JP)
  Receive Date: 20250409
  Receipt Date: 20250630
  Transmission Date: 20250717
  Serious: Yes (Hospitalization, Other)
  Sender: GLAXOSMITHKLINE
  Company Number: JP-GSK-JP2025JPN036086

PATIENT
  Age: 92 Year
  Sex: Female
  Weight: 38.6 kg

DRUGS (11)
  1. DAPRODUSTAT [Suspect]
     Active Substance: DAPRODUSTAT
     Indication: Nephrogenic anaemia
     Dosage: 1 MG, QD
  2. ACETAMINOPHEN [Concomitant]
     Active Substance: ACETAMINOPHEN
     Dosage: 400 MG, TID, AFTER EVERY MEAL
  3. BISOPROLOL [Concomitant]
     Active Substance: BISOPROLOL
     Dosage: 2.5 MG, 1D, AFTER BREAKFAST
  4. EZETIMIBE [Concomitant]
     Active Substance: EZETIMIBE
     Dosage: 10 MG, 1D, AFTER BREAKFAST
  5. ROSUVASTATIN [Concomitant]
     Active Substance: ROSUVASTATIN
     Dosage: 2.5 MG, 1D, AFTER BREAKFAST
  6. TELMISARTAN [Concomitant]
     Active Substance: TELMISARTAN
     Dosage: 40 MG, 1D, AFTER BREAKFAST
  7. RABEPRAZOLE SODIUM [Concomitant]
     Active Substance: RABEPRAZOLE SODIUM
     Dosage: 10 MG, 1D, AFTER BREAKFAST
  8. JARDIANCE [Concomitant]
     Active Substance: EMPAGLIFLOZIN
     Dosage: 10 MG, 1D, AFTER BREAKFAST
  9. ELIQUIS [Concomitant]
     Active Substance: APIXABAN
     Dosage: 2.5 MG, BID, AFTER BREAKFAST AND DINNER
  10. NIFEDIPINE [Concomitant]
     Active Substance: NIFEDIPINE
     Dosage: 30 MG, BID, AFTER BREAKFAST AND DINNER
  11. MAGNESIUM OXIDE [Concomitant]
     Active Substance: MAGNESIUM OXIDE
     Dosage: 250 MG, TID, AFTER EVERY MEAL

REACTIONS (3)
  - Cerebral infarction [Recovered/Resolved with Sequelae]
  - Femoral neck fracture [Recovered/Resolved]
  - Hyporesponsive to stimuli [Recovered/Resolved with Sequelae]

NARRATIVE: CASE EVENT DATE: 20250315
